FAERS Safety Report 9346686 (Version 1)
Quarter: 2013Q2

REPORT INFORMATION
  Report Type: Spontaneous
  Country: US (occurrence: US)
  Receive Date: 20130613
  Receipt Date: 20130613
  Transmission Date: 20140414
  Serious: Yes (Other)
  Sender: FDA-Public Use
  Company Number: US-BAYER-2013-070551

PATIENT
  Age: 31 Year
  Sex: Female

DRUGS (1)
  1. SKYLA [Suspect]
     Indication: CONTRACEPTION
     Dosage: 13.5 MG, CONT
     Route: 015
     Dates: start: 20130416, end: 20130604

REACTIONS (3)
  - Device difficult to use [None]
  - Device dislocation [None]
  - Procedural pain [None]
